FAERS Safety Report 4393710-6 (Version None)
Quarter: 2004Q3

REPORT INFORMATION
  Report Type: 
  Country: None (occurrence: None)
  Receive Date: 20040709
  Receipt Date: 20040611
  Transmission Date: 20050211
  Serious: Yes (Disabling, Other)
  Sender: FDA-Public Use
  Company Number: US-GLAXOSMITHKLINE-A0514346A

PATIENT
  Age: 52 Year
  Sex: Female
  Weight: 82.3 kg

DRUGS (3)
  1. WELLBUTRIN [Suspect]
     Indication: DEPRESSION
     Route: 048
     Dates: start: 20011201, end: 20040510
  2. ACCUPRIL [Concomitant]
     Dosage: 40MG PER DAY
     Route: 048
     Dates: start: 20010101
  3. LIPITOR [Concomitant]
     Dosage: 10MG AT NIGHT
     Route: 048
     Dates: start: 20010101

REACTIONS (6)
  - CLAVICLE FRACTURE [None]
  - FACE INJURY [None]
  - FALL [None]
  - GRAND MAL CONVULSION [None]
  - LACERATION [None]
  - RIB FRACTURE [None]
